FAERS Safety Report 4456043-5 (Version None)
Quarter: 2004Q3

REPORT INFORMATION
  Report Type: 
  Country: None (occurrence: None)
  Receive Date: 20040920
  Receipt Date: 20040902
  Transmission Date: 20050211
  Serious: Yes (Hospitalization)
  Sender: FDA-Public Use
  Company Number: 200221

PATIENT
  Age: 51 Year
  Sex: Female

DRUGS (8)
  1. AVONEX [Suspect]
     Indication: MULTIPLE SCLEROSIS
     Dosage: 30 MCG QW IM
     Route: 030
  2. SOLU-MEDROL [Concomitant]
  3. TRAZODONE HCL [Concomitant]
  4. WELLBUTRIN [Concomitant]
  5. NITROGLYCERIN [Concomitant]
  6. VERAPAMIL [Concomitant]
  7. DILTIAZEM [Concomitant]
  8. ZETIA [Concomitant]

REACTIONS (5)
  - HYPOAESTHESIA [None]
  - HYPOKALAEMIA [None]
  - MULTIPLE SCLEROSIS [None]
  - PRINZMETAL ANGINA [None]
  - PYELONEPHRITIS [None]
